FAERS Safety Report 17856663 (Version 1)
Quarter: 2020Q2

REPORT INFORMATION
  Report Type: Spontaneous
  Country: IT (occurrence: IT)
  Receive Date: 20200603
  Receipt Date: 20200603
  Transmission Date: 20200714
  Serious: Yes (Other)
  Sender: FDA-Public Use
  Company Number: NVSC2020IT151571

PATIENT
  Age: 49 Year
  Sex: Male
  Weight: 81.5 kg

DRUGS (18)
  1. CYCLOSPORINE. [Suspect]
     Active Substance: CYCLOSPORINE
     Indication: LIVER TRANSPLANT
     Dosage: 50 MG, BID, 1CP
     Route: 065
  2. RIBAVIRIN. [Concomitant]
     Active Substance: RIBAVIRIN
     Indication: HEPATITIS VIRAL
     Dosage: UNK
     Route: 065
     Dates: start: 2012
  3. PANTOPRAZOLE [Concomitant]
     Active Substance: PANTOPRAZOLE
     Indication: IMMUNOSUPPRESSANT DRUG THERAPY
  4. RAMIPRIL. [Concomitant]
     Active Substance: RAMIPRIL
     Indication: LIVER TRANSPLANT
     Dosage: 2.5 MG, QD
     Route: 065
  5. URSODEOXYCHOLIC ACID [Concomitant]
     Active Substance: URSODIOL
     Indication: LIVER TRANSPLANT
     Dosage: 450 MG, QD
     Route: 065
  6. MYCOPHENOLATE MOFETIL. [Concomitant]
     Active Substance: MYCOPHENOLATE MOFETIL
     Indication: LIVER TRANSPLANT
     Dosage: 500 MG, BID, 2CP
     Route: 065
  7. ATENOLOL. [Concomitant]
     Active Substance: ATENOLOL
     Indication: LIVER TRANSPLANT
     Dosage: 50 MG, QD
     Route: 065
  8. ATENOLOL. [Concomitant]
     Active Substance: ATENOLOL
     Indication: IMMUNOSUPPRESSANT DRUG THERAPY
  9. URSODEOXYCHOLIC ACID [Concomitant]
     Active Substance: URSODIOL
     Indication: IMMUNOSUPPRESSANT DRUG THERAPY
  10. SIMEPREVIR [Concomitant]
     Active Substance: SIMEPREVIR
     Indication: ANTIVIRAL TREATMENT
     Dosage: UNK
     Route: 065
     Dates: start: 201504
  11. CYCLOSPORINE. [Suspect]
     Active Substance: CYCLOSPORINE
     Indication: IMMUNOSUPPRESSANT DRUG THERAPY
  12. HYDROCHLOROTHIAZIDE. [Concomitant]
     Active Substance: HYDROCHLOROTHIAZIDE
     Indication: LIVER TRANSPLANT
     Dosage: 12.5 MG, QD
     Route: 065
  13. HYDROCHLOROTHIAZIDE. [Concomitant]
     Active Substance: HYDROCHLOROTHIAZIDE
     Indication: IMMUNOSUPPRESSANT DRUG THERAPY
  14. MYCOPHENOLATE MOFETIL. [Concomitant]
     Active Substance: MYCOPHENOLATE MOFETIL
     Indication: IMMUNOSUPPRESSANT DRUG THERAPY
  15. PANTOPRAZOLE [Concomitant]
     Active Substance: PANTOPRAZOLE
     Indication: LIVER TRANSPLANT
     Dosage: 20 MG, QD
     Route: 065
  16. RAMIPRIL. [Concomitant]
     Active Substance: RAMIPRIL
     Indication: IMMUNOSUPPRESSANT DRUG THERAPY
  17. PEGYLATED INTERFERON ALPHA NOS [Concomitant]
     Active Substance: PEGINTERFERON ALFA-2A OR PEGINTERFERON ALFA-2B
     Indication: HEPATITIS VIRAL
     Dosage: UNK
     Route: 065
     Dates: start: 2012
  18. SOFOSBUVIR [Concomitant]
     Active Substance: SOFOSBUVIR
     Indication: ANTIVIRAL TREATMENT
     Dosage: UNK
     Route: 065

REACTIONS (1)
  - Type 2 diabetes mellitus [Unknown]
